FAERS Safety Report 7319792 (Version 18)
Quarter: 2012Q4

REPORT INFORMATION
  Report Type: 
  Country: CA (occurrence: CA)
  Receive Date: 20100315
  Receipt Date: 20121107
  Transmission Date: 20130627
  Serious: Yes (Death, Hospitalization, Other)
  Sender: FDA-Public Use
  Company Number: PHHY2010CA06790

PATIENT
  Sex: Male
  Weight: 46.71 kg

DRUGS (1)
  1. SANDOSTATIN LAR [Suspect]
     Indication: CARCINOID TUMOUR
     Dosage: 40 mg, every 3 weeks
     Route: 030
     Dates: start: 20060918, end: 20111123

REACTIONS (22)
  - Metastatic carcinoid tumour [Fatal]
  - Depressed level of consciousness [Unknown]
  - Injection site haematoma [Unknown]
  - Abasia [Unknown]
  - Sciatic nerve injury [Unknown]
  - Lower respiratory tract infection [Unknown]
  - Musculoskeletal chest pain [Recovering/Resolving]
  - Movement disorder [Unknown]
  - Pain in extremity [Unknown]
  - Musculoskeletal pain [Unknown]
  - Blood pressure systolic increased [Unknown]
  - Injection site induration [Unknown]
  - Injection site swelling [Unknown]
  - Injection site discolouration [Unknown]
  - Wrong technique in drug usage process [Unknown]
  - Pain [Unknown]
  - Contusion [Unknown]
  - Dyspnoea [Unknown]
  - Nasopharyngitis [Unknown]
  - Night sweats [Unknown]
  - Weight decreased [Unknown]
  - Diarrhoea [Unknown]
